FAERS Safety Report 20954270 (Version 1)
Quarter: 2022Q2

REPORT INFORMATION
  Report Type: Spontaneous
  Country: US (occurrence: US)
  Receive Date: 20220614
  Receipt Date: 20220614
  Transmission Date: 20220721
  Serious: No
  Sender: FDA-Public Use
  Company Number: US-BAUSCH-BL-2022-014379

PATIENT
  Age: 88 Year
  Sex: Male

DRUGS (2)
  1. OPCON-A [Suspect]
     Active Substance: NAPHAZOLINE HYDROCHLORIDE\PHENIRAMINE MALEATE
     Indication: Eye allergy
     Route: 047
     Dates: start: 20220604, end: 20220607
  2. ZADITOR [Concomitant]
     Active Substance: KETOTIFEN FUMARATE
     Indication: Product used for unknown indication

REACTIONS (2)
  - Instillation site pain [Recovered/Resolved]
  - Instillation site lacrimation [Recovered/Resolved]

NARRATIVE: CASE EVENT DATE: 20220601
